FAERS Safety Report 7258554-6 (Version None)
Quarter: 2011Q1

REPORT INFORMATION
  Report Type: 
  Country: None (occurrence: None)
  Receive Date: 20110129
  Receipt Date: 20100507
  Transmission Date: 20110831
  Serious: No
  Sender: FDA-Public Use
  Company Number: US-ABBOTT-10P-163-0642945-00

PATIENT
  Age: 20 Year
  Sex: Female

DRUGS (3)
  1. HUMIRA [Suspect]
     Dates: start: 20100501
  2. HUMIRA [Suspect]
     Indication: CROHN'S DISEASE
     Dosage: (160 MG) 4 IN 1 DAYS
     Dates: start: 20100401, end: 20100401
  3. HUMIRA [Suspect]
     Dosage: (80MG) 2 IN 1 DAYS
     Route: 050
     Dates: start: 20100401, end: 20100401

REACTIONS (1)
  - ABDOMINAL PAIN [None]
